FAERS Safety Report 5708456-9 (Version None)
Quarter: 2008Q2

REPORT INFORMATION
  Report Type: 
  Country: None (occurrence: None)
  Receive Date: 20080417
  Receipt Date: 20080411
  Transmission Date: 20081010
  Serious: Yes (Other)
  Sender: FDA-Public Use
  Company Number: US-PFIZER INC-2008023177

PATIENT
  Sex: Female

DRUGS (4)
  1. XALATAN [Suspect]
     Indication: OPEN ANGLE GLAUCOMA
     Route: 047
     Dates: start: 20010327, end: 20080311
  2. COSOPT [Concomitant]
     Route: 047
  3. CALCIUM [Concomitant]
  4. VITAMINS [Concomitant]

REACTIONS (4)
  - CATARACT OPERATION [None]
  - EYE PAIN [None]
  - HYPHAEMA [None]
  - MACULAR OEDEMA [None]
